FAERS Safety Report 4723420-4 (Version None)
Quarter: 2005Q3

REPORT INFORMATION
  Report Type: 
  Country: None (occurrence: None)
  Receive Date: 20050721
  Receipt Date: 20050721
  Transmission Date: 20060218
  Serious: Yes (Hospitalization)
  Sender: FDA-Public Use
  Company Number: None

PATIENT
  Age: 35 Year
  Sex: Male

DRUGS (2)
  1. WARFARIN 5 MG [Suspect]
     Dosage: 5 MG T,R,F,S,SU ORAL
     Route: 048
  2. WARFARIN 7.5 MG [Suspect]
     Dosage: 7.5 MG M,F ORAL
     Route: 048

REACTIONS (4)
  - DYSPNOEA [None]
  - HAEMOPTYSIS [None]
  - INTERNATIONAL NORMALISED RATIO ABNORMAL [None]
  - PROTHROMBIN TIME PROLONGED [None]
